FAERS Safety Report 21247117 (Version 1)
Quarter: 2022Q3

REPORT INFORMATION
  Report Type: Spontaneous
  Country: US (occurrence: None)
  Receive Date: 20220823
  Receipt Date: 20220823
  Transmission Date: 20221027
  Serious: Yes (Death)
  Sender: FDA-Public Use
  Company Number: None

PATIENT
  Age: 61 Year
  Sex: Male
  Weight: 102.15 kg

DRUGS (5)
  1. OZEMPIC [Suspect]
     Active Substance: SEMAGLUTIDE
     Indication: Type 2 diabetes mellitus
     Dosage: OTHER FREQUENCY : ONCE WEEKLY;?
     Route: 058
     Dates: start: 20220702, end: 20220718
  2. AMLODIPINE [Concomitant]
     Active Substance: AMLODIPINE BESYLATE
     Dates: start: 20190107
  3. METOPROLOL [Concomitant]
     Active Substance: METOPROLOL
     Dates: start: 20190107
  4. GABAPENTIN [Concomitant]
     Active Substance: GABAPENTIN
     Dates: start: 20190107
  5. DULOXETINE [Concomitant]
     Active Substance: DULOXETINE
     Dates: start: 20190107

REACTIONS (2)
  - Angioedema [None]
  - Drug ineffective [None]

NARRATIVE: CASE EVENT DATE: 20220718
